FAERS Safety Report 8858233 (Version 1)
Quarter: 2012Q4

REPORT INFORMATION
  Report Type: 
  Country: US (occurrence: US)
  Receive Date: 20121024
  Receipt Date: 20121024
  Transmission Date: 20130627
  Serious: No
  Sender: FDA-Public Use
  Company Number: US-AMGEN-USASP2011068216

PATIENT
  Sex: Female

DRUGS (7)
  1. ENBREL [Suspect]
     Indication: PRODUCT USED FOR UNKNOWN INDICATION
     Dosage: 50 mg, qwk
     Route: 058
  2. PREDNISONE [Concomitant]
     Dosage: 5 mg, UNK
     Route: 048
  3. METFORMIN [Concomitant]
     Dosage: 500 mg, UNK
     Route: 048
  4. FOLIC ACID [Concomitant]
     Dosage: 1 mg, UNK
     Route: 048
  5. MULTIVITAMIN                       /00097801/ [Concomitant]
     Dosage: UNK
     Route: 048
  6. VITAMIN D /00107901/ [Concomitant]
     Dosage: 1000 IU, UNK
     Route: 048
  7. GLIPIZIDE XL [Concomitant]
     Dosage: 10 mg, UNK
     Route: 048

REACTIONS (1)
  - Injection site erythema [Unknown]
